FAERS Safety Report 7921857-3 (Version None)
Quarter: 2011Q4

REPORT INFORMATION
  Report Type: 
  Country: None (occurrence: None)
  Receive Date: 20111117
  Receipt Date: 20111109
  Transmission Date: 20120403
  Serious: No
  Sender: FDA-Public Use
  Company Number: US-B.I. PHARMACEUTICALS,INC./RIDGEFIELD-2011-BP-24676BP

PATIENT
  Sex: Female
  Weight: 118.84 kg

DRUGS (11)
  1. OTC EYE DROPS [Concomitant]
  2. FLONASE [Concomitant]
  3. NEXIUM [Concomitant]
  4. ADVAIR DISKUS 100/50 [Concomitant]
  5. ALBUTEROL SULFATE [Concomitant]
  6. VENTOLIN HFA [Concomitant]
  7. SINGULAIR [Concomitant]
  8. ZYRTEC [Concomitant]
  9. SPIRIVA [Suspect]
     Indication: ASTHMA
     Dosage: 18 MCG
     Route: 055
     Dates: start: 20111017, end: 20111019
  10. PREDNISONE TAB [Concomitant]
     Indication: ASTHMA
  11. ZITHROMAX [Concomitant]

REACTIONS (1)
  - THROAT TIGHTNESS [None]
